FAERS Safety Report 8514959-4 (Version None)
Quarter: 2012Q3

REPORT INFORMATION
  Report Type: 
  Country: None (occurrence: None)
  Receive Date: 20120717
  Receipt Date: 20120705
  Transmission Date: 20120928
  Serious: No
  Sender: FDA-Public Use
  Company Number: US-ASTRAZENECA-2012SE45899

PATIENT
  Age: 75 Year
  Sex: Female
  Weight: 65.3 kg

DRUGS (8)
  1. FASLODEX [Suspect]
     Route: 030
  2. SIMVASTATIN [Concomitant]
  3. PRADAXA [Concomitant]
     Indication: ANTICOAGULANT THERAPY
  4. NEXIUM [Suspect]
     Indication: GASTROOESOPHAGEAL REFLUX DISEASE
     Route: 048
  5. FASLODEX [Suspect]
     Indication: BREAST CANCER
     Route: 030
  6. MULTAQ [Concomitant]
  7. BONIVA [Concomitant]
  8. PLENDIL [Suspect]
     Indication: BLOOD PRESSURE ABNORMAL
     Route: 048

REACTIONS (2)
  - ARTHRALGIA [None]
  - OFF LABEL USE [None]
